FAERS Safety Report 5275612-6 (Version None)
Quarter: 2007Q1

REPORT INFORMATION
  Report Type: 
  Country: None (occurrence: None)
  Receive Date: 20070326
  Receipt Date: 20070314
  Transmission Date: 20070707
  Serious: Yes (Other)
  Sender: FDA-Public Use
  Company Number: PHBS2007BE04592

PATIENT
  Sex: Female

DRUGS (1)
  1. LEPONEX [Suspect]
     Dosage: UNK, QD
     Route: 048

REACTIONS (3)
  - CONDITION AGGRAVATED [None]
  - FALL [None]
  - PAIN IN EXTREMITY [None]
